FAERS Safety Report 15865488 (Version 1)
Quarter: 2019Q1

REPORT INFORMATION
  Report Type: Spontaneous
  Country: US (occurrence: US)
  Receive Date: 20190125
  Receipt Date: 20190125
  Transmission Date: 20190417
  Serious: No
  Sender: FDA-Public Use
  Company Number: US-ASTRAZENECA-2019SE13234

PATIENT
  Age: 26968 Day
  Sex: Female
  Weight: 88.5 kg

DRUGS (10)
  1. EXTRA VITAMIN C [Concomitant]
     Indication: PROPHYLAXIS
     Route: 048
  2. ADVAIR HFA [Concomitant]
     Active Substance: FLUTICASONE PROPIONATE\SALMETEROL XINAFOATE
  3. LOSARTAN. [Concomitant]
     Active Substance: LOSARTAN
     Indication: BLOOD PRESSURE ABNORMAL
     Route: 048
  4. BABY ASPIRIN [Concomitant]
     Active Substance: ASPIRIN
     Indication: CEREBROVASCULAR ACCIDENT
     Route: 048
  5. COQ 10 [Concomitant]
     Active Substance: UBIDECARENONE
     Indication: CARDIAC DISORDER
     Route: 048
  6. VITAMN K2 [Concomitant]
     Indication: PROPHYLAXIS
     Route: 048
  7. SYMBICORT [Suspect]
     Active Substance: BUDESONIDE\FORMOTEROL FUMARATE DIHYDRATE
     Indication: ASTHMA
     Dosage: 80/4.5 MCG TWO TIMES A DAY
     Route: 055
     Dates: start: 20190109
  8. METOPROLOL SUCCINATE. [Suspect]
     Active Substance: METOPROLOL SUCCINATE
     Indication: MUSCULOSKELETAL STIFFNESS
     Route: 048
     Dates: start: 2018
  9. ATORVASTATIN [Concomitant]
     Active Substance: ATORVASTATIN
     Indication: BLOOD CHOLESTEROL
     Route: 048
  10. VITAMIN D [Concomitant]
     Active Substance: CHOLECALCIFEROL
     Indication: PROPHYLAXIS
     Dosage: 2000
     Route: 048

REACTIONS (20)
  - Eating disorder [Unknown]
  - Nasal disorder [Unknown]
  - Device use issue [Unknown]
  - Oral disorder [Unknown]
  - Rhinorrhoea [Unknown]
  - Facial pain [Unknown]
  - Carotid artery disease [Unknown]
  - Sinus disorder [Unknown]
  - Epistaxis [Unknown]
  - Anxiety [Unknown]
  - Oral pain [Unknown]
  - Nervousness [Unknown]
  - Crying [Unknown]
  - Pain [Unknown]
  - Ear pain [Unknown]
  - Rhinalgia [Unknown]
  - Lip swelling [Unknown]
  - Circumstance or information capable of leading to medication error [Unknown]
  - Product dose omission [Unknown]
  - Oral discomfort [Unknown]
